FAERS Safety Report 5321012-X (Version None)
Quarter: 2007Q2

REPORT INFORMATION
  Report Type: 
  Country: None (occurrence: None)
  Receive Date: 20070209
  Receipt Date: 20060215
  Transmission Date: 20071010
  Serious: Yes (Other)
  Sender: FDA-Public Use
  Company Number: CTI_0879_2006

PATIENT
  Sex: Male

DRUGS (1)
  1. ZYFLO [Suspect]
     Dosage: 600 MG

REACTIONS (1)
  - HEPATIC ENZYME INCREASED [None]
